FAERS Safety Report 24647910 (Version 1)
Quarter: 2024Q4

REPORT INFORMATION
  Report Type: Spontaneous
  Country: IT (occurrence: IT)
  Receive Date: 20241121
  Receipt Date: 20241121
  Transmission Date: 20250115
  Serious: Yes (Hospitalization)
  Sender: ABBVIE
  Company Number: IT-PFIZER INC-202400301204

PATIENT
  Age: 49 Year
  Sex: Male

DRUGS (2)
  1. AVIBACTAM SODIUM\CEFTAZIDIME [Suspect]
     Active Substance: AVIBACTAM SODIUM\CEFTAZIDIME
     Indication: Klebsiella infection
     Route: 065
  2. RILUZOLO [Concomitant]
     Indication: Product used for unknown indication

REACTIONS (6)
  - Toxicity to various agents [Unknown]
  - Liver disorder [Unknown]
  - Cholestasis [Unknown]
  - Blood bilirubin increased [Unknown]
  - Pancreatic disorder [Unknown]
  - Transaminases abnormal [Unknown]
